FAERS Safety Report 8056322-9 (Version None)
Quarter: 2012Q1

REPORT INFORMATION
  Report Type: 
  Country: None (occurrence: None)
  Receive Date: 20120119
  Receipt Date: 20120109
  Transmission Date: 20120608
  Serious: Yes (Hospitalization, Other)
  Sender: FDA-Public Use
  Company Number: US-BAYER-2011-038304

PATIENT
  Sex: Female
  Weight: 79.365 kg

DRUGS (14)
  1. YASMIN [Suspect]
  2. LORTAB [Concomitant]
     Dosage: UNK
  3. CONVENT INHALER [Concomitant]
     Dosage: UNK
  4. LEVAQUIN [Concomitant]
     Dosage: 750 MG, UNK
  5. OXYCODONE HCL [Concomitant]
     Dosage: 10/325 TABLETS
  6. KLONOPIN [Concomitant]
     Dosage: UNK
  7. HYDROCODONE BITARTRATE AND ACETAMINOPHEN [Concomitant]
     Dosage: 7.5/500 MG TABLETS
  8. APAP TAB [Concomitant]
     Dosage: 10/325 TABLETS
  9. VALTREX [Concomitant]
     Dosage: 600 MG, UNK
  10. YAZ [Suspect]
  11. PROMETHAZINE [Concomitant]
     Dosage: 25 MG, UNK
  12. ASTHMA MEDICINE [Concomitant]
     Dosage: UNK
     Dates: start: 20060101
  13. RISPERIDONE [Concomitant]
     Dosage: 1 MG TABLETS
  14. PREDNISONE TAB [Concomitant]
     Dosage: 10 MG TABLETS

REACTIONS (11)
  - INJURY [None]
  - QUALITY OF LIFE DECREASED [None]
  - FEAR [None]
  - ANHEDONIA [None]
  - EMOTIONAL DISTRESS [None]
  - MENTAL DISORDER [None]
  - CHOLECYSTITIS CHRONIC [None]
  - ANXIETY [None]
  - PAIN [None]
  - CHOLELITHIASIS [None]
  - DEEP VEIN THROMBOSIS [None]
